FAERS Safety Report 21769197 (Version 1)
Quarter: 2022Q4

REPORT INFORMATION
  Report Type: Report from Study
  Country: NL (occurrence: None)
  Receive Date: 20221222
  Receipt Date: 20221222
  Transmission Date: 20230113
  Serious: Yes (Hospitalization)
  Sender: FDA-Public Use
  Company Number: NL-Merck Healthcare KGaA-9374146

PATIENT
  Sex: Female

DRUGS (1)
  1. REBIF [Suspect]
     Active Substance: INTERFERON BETA-1A
     Indication: Product used for unknown indication
     Dosage: PRE-FILLED SYRINGES
     Route: 058
     Dates: start: 20181126

REACTIONS (3)
  - Mental disorder [Unknown]
  - Product dose omission issue [Unknown]
  - Product availability issue [Unknown]
